FAERS Safety Report 5794499-6 (Version None)
Quarter: 2008Q2

REPORT INFORMATION
  Report Type: 
  Country: None (occurrence: None)
  Receive Date: 20080626
  Receipt Date: 20080527
  Transmission Date: 20081010
  Serious: Yes (Hospitalization)
  Sender: FDA-Public Use
  Company Number: GXKR2008IT05487

PATIENT
  Sex: Male

DRUGS (1)
  1. TICLOPIDINE HYDROCHLORIDE [Suspect]

REACTIONS (1)
  - DIARRHOEA [None]
